FAERS Safety Report 20391378 (Version 5)
Quarter: 2022Q1

REPORT INFORMATION
  Report Type: Spontaneous
  Country: UA (occurrence: None)
  Receive Date: 20220128
  Receipt Date: 20220216
  Transmission Date: 20220423
  Serious: Yes (Death, Life-Threatening, Hospitalization, Other)
  Sender: FDA-Public Use
  Company Number: 2021A900964

PATIENT
  Age: 18495 Day
  Sex: Female
  Weight: 72 kg

DRUGS (8)
  1. TAGRISSO [Suspect]
     Active Substance: OSIMERTINIB
     Indication: Non-small cell lung cancer
     Route: 048
     Dates: start: 20211217, end: 20220129
  2. NIMESULIDE [Concomitant]
     Active Substance: NIMESULIDE
     Route: 065
  3. CLARITHROMYCIN [Concomitant]
     Active Substance: CLARITHROMYCIN
     Indication: Bronchitis
     Route: 065
  4. DEXAMETHASONE [Concomitant]
     Active Substance: DEXAMETHASONE
     Route: 065
  5. METOCLOPRAMIDE HYDROCHLORIDE [Concomitant]
     Active Substance: METOCLOPRAMIDE HYDROCHLORIDE
     Route: 065
  6. XARELTO [Concomitant]
     Active Substance: RIVAROXABAN
     Route: 065
  7. FLEBAVEN [Concomitant]
     Route: 065
  8. SUFER [Concomitant]
     Route: 065

REACTIONS (13)
  - COVID-19 [Fatal]
  - Cerebral infarction [Fatal]
  - Ischaemic stroke [Unknown]
  - Thrombophlebitis [Unknown]
  - Vomiting [Recovered/Resolved]
  - Thrombosis [Unknown]
  - Body temperature increased [Not Recovered/Not Resolved]
  - Nausea [Recovered/Resolved]
  - Abdominal discomfort [Recovered/Resolved]
  - Anaemia [Unknown]
  - Burning sensation [Unknown]
  - Hypertension [Recovering/Resolving]
  - Memory impairment [Unknown]

NARRATIVE: CASE EVENT DATE: 20211217
